FAERS Safety Report 9451490 (Version 1)
Quarter: 2013Q3

REPORT INFORMATION
  Report Type: Spontaneous
  Country: US (occurrence: US)
  Receive Date: 20130810
  Receipt Date: 20130810
  Transmission Date: 20140515
  Serious: Yes (Other)
  Sender: FDA-Public Use
  Company Number: US-ROCHE-1259045

PATIENT
  Age: 27 Year
  Sex: Female

DRUGS (9)
  1. XOLAIR [Suspect]
     Indication: ASTHMA
     Route: 058
     Dates: start: 20130806
  2. ADVAIR [Concomitant]
  3. ALBUTEROL [Concomitant]
     Route: 065
  4. ALBUTEROL [Concomitant]
     Dosage: USED FOR TREATMENT OF ADVRSE EVENT
     Route: 065
  5. FLONASE [Concomitant]
  6. SINGULAIR [Concomitant]
  7. LORATADINE [Concomitant]
  8. EPIPEN [Concomitant]
     Route: 065
  9. EPIPEN [Concomitant]
     Dosage: USED FOR TREATMENT OF ADVRSE EVENT
     Route: 065

REACTIONS (1)
  - Anaphylactic reaction [Recovered/Resolved]
